FAERS Safety Report 23827526 (Version 1)
Quarter: 2024Q2

REPORT INFORMATION
  Report Type: Report from Study
  Country: GB (occurrence: GB)
  Receive Date: 20240507
  Receipt Date: 20240507
  Transmission Date: 20240715
  Serious: Yes (Other)
  Sender: FDA-Public Use
  Company Number: GB-TAKEDA-2023TUS088474

PATIENT
  Age: 67 Year
  Sex: Female

DRUGS (4)
  1. VERAPAMIL [Suspect]
     Active Substance: VERAPAMIL HYDROCHLORIDE
     Indication: Atrial fibrillation
     Dosage: UNK
     Route: 050
  2. REPLAGAL [Suspect]
     Active Substance: AGALSIDASE ALFA
     Indication: Fabry^s disease
     Dosage: 17.5 MILLIGRAM, Q2WEEKS
     Route: 050
  3. REPLAGAL [Suspect]
     Active Substance: AGALSIDASE ALFA
     Indication: Fabry^s disease
     Dosage: 17.5 MILLIGRAM, Q2WEEKS
     Route: 050
  4. REPLAGAL [Suspect]
     Active Substance: AGALSIDASE ALFA
     Indication: Fabry^s disease
     Dosage: 14 MILLIGRAM, Q2WEEKS
     Route: 050

REACTIONS (14)
  - Atrial fibrillation [Recovered/Resolved]
  - Wrong technique in product usage process [Unknown]
  - Heart rate decreased [Unknown]
  - Nausea [Unknown]
  - Visual impairment [Recovered/Resolved]
  - Malaise [Unknown]
  - Heart rate abnormal [Recovered/Resolved]
  - Body temperature decreased [Unknown]
  - Migraine [Recovered/Resolved]
  - Nervousness [Recovered/Resolved]
  - Blood pressure increased [Unknown]
  - Product distribution issue [Unknown]
  - Back pain [Unknown]
  - Pain in extremity [Not Recovered/Not Resolved]
